FAERS Safety Report 24358465 (Version 1)
Quarter: 2024Q3

REPORT INFORMATION
  Report Type: Spontaneous
  Country: JP (occurrence: JP)
  Receive Date: 20240924
  Receipt Date: 20240924
  Transmission Date: 20241017
  Serious: Yes (Hospitalization)
  Sender: PFIZER
  Company Number: JP-ONO-2024JP019380

PATIENT
  Age: 10 Decade
  Sex: Female

DRUGS (5)
  1. BRAFTOVI [Suspect]
     Active Substance: ENCORAFENIB
     Indication: Malignant melanoma
     Dosage: UNK
     Route: 048
  2. BRAFTOVI [Suspect]
     Active Substance: ENCORAFENIB
     Dosage: UNK
     Route: 048
  3. MEKTOVI [Suspect]
     Active Substance: BINIMETINIB
     Indication: Malignant melanoma
     Dosage: UNK
     Route: 048
  4. MEKTOVI [Suspect]
     Active Substance: BINIMETINIB
     Dosage: UNK
     Route: 048
  5. OPDIVO [Suspect]
     Active Substance: NIVOLUMAB
     Indication: Malignant melanoma
     Dosage: UNK
     Route: 041

REACTIONS (3)
  - Nausea [Unknown]
  - Decreased appetite [Unknown]
  - Blood creatine phosphokinase increased [Recovering/Resolving]
